FAERS Safety Report 7438132-6 (Version None)
Quarter: 2011Q2

REPORT INFORMATION
  Report Type: 
  Country: None (occurrence: None)
  Receive Date: 20110426
  Receipt Date: 20110419
  Transmission Date: 20111010
  Serious: Yes (Hospitalization, Other)
  Sender: FDA-Public Use
  Company Number: FR-PFIZER INC-2011084961

PATIENT
  Age: 46 Year
  Sex: Female

DRUGS (2)
  1. SALAZOPYRINE [Suspect]
     Indication: MUSCULOSKELETAL PAIN
     Dosage: 5 DF (2 TABLETS IN THE MORNING AND 3 TABLETS IN THE EVENING), DAILY
     Route: 048
     Dates: start: 20100901, end: 20110101
  2. SALAZOPYRINE [Suspect]
     Dosage: 5 DF (2 TABLETS IN THE MORNING AND 3 TABLETS IN THE EVENING), DAILY
     Route: 048
     Dates: start: 20110301, end: 20110324

REACTIONS (9)
  - DERMATITIS EXFOLIATIVE [None]
  - HYPERTHERMIA [None]
  - NAUSEA [None]
  - HYPERSENSITIVITY [None]
  - PRURITUS [None]
  - VOMITING [None]
  - CHOLECYSTITIS [None]
  - CYTOLYTIC HEPATITIS [None]
  - PURPURA [None]
